FAERS Safety Report 14270733 (Version 1)
Quarter: 2017Q4

REPORT INFORMATION
  Report Type: Spontaneous
  Country: JP (occurrence: JP)
  Receive Date: 20171211
  Receipt Date: 20171211
  Transmission Date: 20180321
  Serious: Yes (Death, Life-Threatening, Hospitalization)
  Sender: FDA-Public Use
  Company Number: JP-OTSUKA-010632

PATIENT
  Age: 56 Year
  Sex: Female
  Weight: 35.6 kg

DRUGS (10)
  1. ULCERLMIN [Concomitant]
     Active Substance: SUCRALFATE
     Indication: PROCTITIS
     Dosage: 1 DF, BID
     Route: 054
     Dates: start: 20100427, end: 20100518
  2. ZYPREXA [Suspect]
     Active Substance: OLANZAPINE
     Dosage: 10 MG, QD
     Route: 048
     Dates: start: 20100517, end: 20100517
  3. ABILIFY [Suspect]
     Active Substance: ARIPIPRAZOLE
     Indication: SCHIZOPHRENIA
     Dosage: 6 MG, QD
     Route: 048
     Dates: start: 20100514, end: 20100518
  4. ZYPREXA [Suspect]
     Active Substance: OLANZAPINE
     Dosage: 15 MG, QD
     Route: 048
     Dates: start: 20100421, end: 20100516
  5. FLUNITRAZEPAM [Concomitant]
     Active Substance: FLUNITRAZEPAM
     Indication: PRODUCT USED FOR UNKNOWN INDICATION
     Dosage: TABLET
     Dates: start: 20100505, end: 20100517
  6. ZYPREXA [Suspect]
     Active Substance: OLANZAPINE
     Indication: SCHIZOPHRENIA
     Dosage: 20 MG, QD
     Route: 048
     Dates: start: 20100303, end: 20100420
  7. STERONEMA [Suspect]
     Active Substance: BETAMETHASONE SODIUM PHOSPHATE
     Indication: PROCTITIS
     Dosage: 1 DF, QD
     Route: 054
     Dates: start: 20100427, end: 20100518
  8. OLANZAPINE. [Suspect]
     Active Substance: OLANZAPINE
     Indication: SCHIZOPHRENIA
     Dosage: 03MAR10-20APR10(49D);21APR10-16MAY10;26DAYS,17MAY10-17MAY10(1D)  TABS
     Route: 048
     Dates: start: 20100303, end: 20100517
  9. LENDEM [Concomitant]
     Indication: SCHIZOPHRENIA
     Dosage: 0.25 MG, QD
     Route: 048
     Dates: start: 20100505, end: 20100517
  10. ROHYPNOL [Concomitant]
     Active Substance: FLUNITRAZEPAM
     Indication: SCHIZOPHRENIA
     Dosage: 2 MG, QD
     Route: 048
     Dates: start: 20100505, end: 20100517

REACTIONS (2)
  - Blood glucose abnormal [Fatal]
  - Liver disorder [Fatal]

NARRATIVE: CASE EVENT DATE: 20100516
